FAERS Safety Report 10926022 (Version 1)
Quarter: 2015Q1

REPORT INFORMATION
  Report Type: Spontaneous
  Country: US (occurrence: None)
  Receive Date: 20150202
  Receipt Date: 20150202
  Transmission Date: 20150721
  Serious: Yes (Other)
  Sender: FDA-Public Use
  Company Number: TPA2012A07921

PATIENT
  Age: 66 Year
  Sex: Female
  Weight: 81.19 kg

DRUGS (11)
  1. FISH OIL [Concomitant]
     Active Substance: FISH OIL
  2. AMLODIPINE [Concomitant]
     Active Substance: AMLODIPINE BESYLATE
  3. STOOL SOFTENER (DOCUSATE SODIUM) [Concomitant]
     Active Substance: DOCUSATE SODIUM
  4. GLUCOSAMINE CHONDROITIN [Concomitant]
     Active Substance: CHONDROITIN SULFATE (BOVINE)\GLUCOSAMINE HYDROCHLORIDE
  5. FOLIC ACID. [Concomitant]
     Active Substance: FOLIC ACID
  6. SUCRALFATE. [Concomitant]
     Active Substance: SUCRALFATE
  7. THERALAC (BIFIDOBACTERIUM LACTIS) [Concomitant]
  8. DEXILANT [Suspect]
     Active Substance: DEXLANSOPRAZOLE
     Indication: GASTRITIS EROSIVE
     Route: 048
     Dates: start: 20120914
  9. SOURCE NATURAL DIGESTIVE ENZYMES (BETAINE HYDROCHLORIDE, PANCREATIN, BROMELAINS, PAPAIN, CELLULASE) [Concomitant]
  10. MEGA FOOD B-COMPLEX VEGETARIAN SUPPLEMENT (PYRIDOXINE HYDROCHLORIDE, THIAMINE HYDROCHLORIDE, RIBOFLAVIN, NICOTINAMIDE) [Concomitant]
  11. MAGNESIUM [Concomitant]
     Active Substance: MAGNESIUM

REACTIONS (6)
  - Diverticulum [None]
  - Abdominal pain upper [None]
  - Pancreatic cyst [None]
  - Gastric mucosa erythema [None]
  - Gastric ulcer [None]
  - Faeces discoloured [None]

NARRATIVE: CASE EVENT DATE: 20120925
